FAERS Safety Report 8226070-0 (Version None)
Quarter: 2012Q1

REPORT INFORMATION
  Report Type: 
  Country: None (occurrence: None)
  Receive Date: 20120307
  Receipt Date: 20110331
  Transmission Date: 20120608
  Serious: Yes (Hospitalization)
  Sender: FDA-Public Use
  Company Number: ABMER-11-0248

PATIENT
  Sex: Female

DRUGS (15)
  1. LEVOBUNOLOL HCL (LEVOBUNOLOL) [Concomitant]
  2. DEXAMETHASONE [Concomitant]
  3. MAGNESIUM SULFATE [Concomitant]
  4. SODIUM CHLORIDE 0.9% [Concomitant]
  5. PALONOSETRON [Concomitant]
  6. VANCOMYCIN [Concomitant]
  7. ONDANSETRON [Concomitant]
  8. POTASSIUM CHLORIDE [Concomitant]
  9. PEGFILGRASTIM (PEGFILGRASTIM) [Concomitant]
  10. CARBOPLATIN [Concomitant]
  11. TRASTUZUMAB (TRASTUZUMAB) [Concomitant]
  12. CELEXA [Concomitant]
  13. ALISKIREN [Concomitant]
  14. ABRAXANE [Suspect]
     Indication: BREAST CANCER
     Dates: start: 20110222
  15. MORPHINE [Concomitant]

REACTIONS (1)
  - PNEUMONIA [None]
